FAERS Safety Report 9942412 (Version 1)
Quarter: 2014Q1

REPORT INFORMATION
  Report Type: Spontaneous
  Country: DE (occurrence: DE)
  Receive Date: 20140303
  Receipt Date: 20140303
  Transmission Date: 20141002
  Serious: Yes (Other)
  Sender: FDA-Public Use
  Company Number: DE-WATSON-2014-03187

PATIENT
  Age: 44 Year
  Sex: Female
  Weight: 60 kg

DRUGS (2)
  1. LEVOFLOXACIN (UNKNOWN) [Suspect]
     Indication: URINARY TRACT INFECTION
     Dosage: 3 X 500 MG
     Route: 048
  2. L-THYROX [Concomitant]
     Indication: PRODUCT USED FOR UNKNOWN INDICATION
     Dosage: 125 MG, QAM
     Route: 065
     Dates: start: 2012

REACTIONS (9)
  - Pharyngeal hypoaesthesia [Unknown]
  - Tendon pain [Unknown]
  - Muscular weakness [Unknown]
  - Disturbance in attention [Unknown]
  - Abdominal discomfort [Unknown]
  - Arthralgia [Unknown]
  - Headache [Unknown]
  - Dysphagia [Unknown]
  - Hypoaesthesia [Unknown]
